FAERS Safety Report 14388538 (Version 9)
Quarter: 2018Q3

REPORT INFORMATION
  Report Type: Report from Study
  Country: DE (occurrence: DE)
  Receive Date: 20180115
  Receipt Date: 20180917
  Transmission Date: 20181010
  Serious: Yes (Death, Hospitalization)
  Sender: FDA-Public Use
  Company Number: DE-PFIZER INC-2018008494

PATIENT
  Age: 67 Year
  Sex: Female
  Weight: 95 kg

DRUGS (30)
  1. CALCIUM FOLINATE [Suspect]
     Active Substance: LEUCOVORIN CALCIUM
     Dosage: 1120 MG, WEEKLY
     Route: 042
     Dates: start: 20131106
  2. AVASTIN [Suspect]
     Active Substance: BEVACIZUMAB
     Indication: COLORECTAL CANCER METASTATIC
     Dosage: 475 MG, EVERY 2 WEEKS
     Route: 042
     Dates: start: 20130211, end: 20130211
  3. FLECAINIDE [Concomitant]
     Active Substance: FLECAINIDE
     Indication: ARRHYTHMIA
     Dosage: 200 MG, DAILY
     Route: 048
  4. AVASTIN [Suspect]
     Active Substance: BEVACIZUMAB
     Dosage: 280 MG, EVERY 2 WEEKS
     Route: 042
     Dates: start: 20131106
  5. 5?FU /00098801/ [Suspect]
     Active Substance: FLUOROURACIL
     Dosage: 650 MG, EVERY 2 WEEKS
     Route: 040
     Dates: start: 20130323, end: 20130715
  6. PEGYLATED LIPOSOMAL IRINOTECAN [Suspect]
     Active Substance: IRINOTECAN HYDROCHLORIDE
     Dosage: 280 MG, EVERY 2 WEEKS
     Route: 042
     Dates: start: 20131106
  7. PANTOZOL [Concomitant]
     Active Substance: PANTOPRAZOLE SODIUM
     Dosage: 40 MG, DAILY
     Route: 048
  8. CALCIUM FOLINATE [Suspect]
     Active Substance: LEUCOVORIN CALCIUM
     Indication: COLORECTAL CANCER
     Dosage: 800 MG, EVERY 2 WEEKS
     Route: 042
     Dates: start: 20130211, end: 20130311
  9. AVASTIN [Suspect]
     Active Substance: BEVACIZUMAB
     Dosage: 360 MG, EVERY 2 WEEKS
     Route: 042
     Dates: start: 20130211, end: 20130311
  10. PEGYLATED LIPOSOMAL IRINOTECAN [Suspect]
     Active Substance: IRINOTECAN HYDROCHLORIDE
     Dosage: 300 MG, EVERY 2 WEEKS
     Route: 042
     Dates: start: 20130715
  11. MARCUMAR [Concomitant]
     Active Substance: PHENPROCOUMON
     Indication: ATRIAL FIBRILLATION
     Dosage: 3 MG, AS NEEDED
     Route: 048
  12. CALCIUM FOLINATE [Suspect]
     Active Substance: LEUCOVORIN CALCIUM
     Dosage: 560 MG, EVERY 2 WEEKS
     Route: 042
     Dates: start: 20131106
  13. 5?FU /00098801/ [Suspect]
     Active Substance: FLUOROURACIL
     Dosage: 3350 MG, EVERY 2 WEEKS
     Route: 041
     Dates: start: 20131106, end: 20131108
  14. PEGYLATED LIPOSOMAL IRINOTECAN [Suspect]
     Active Substance: IRINOTECAN HYDROCHLORIDE
     Dosage: 360 MG, EVERY 2 WEEKS
     Route: 042
     Dates: start: 20130211, end: 20130311
  15. PEGYLATED LIPOSOMAL IRINOTECAN [Suspect]
     Active Substance: IRINOTECAN HYDROCHLORIDE
     Dosage: 280 MG, EVERY 2 WEEKS
     Route: 042
     Dates: start: 20130408, end: 20130701
  16. OPIPRAMOL [Concomitant]
     Active Substance: OPIPRAMOL
     Indication: DEPRESSION
     Dosage: 100 MG, UNK
     Route: 048
  17. 5?FU /00098801/ [Suspect]
     Active Substance: FLUOROURACIL
     Indication: COLORECTAL CANCER
     Dosage: 4800 MG, EVERY 2 WEEKS
     Route: 041
     Dates: start: 20130211, end: 20130313
  18. 5?FU /00098801/ [Suspect]
     Active Substance: FLUOROURACIL
     Dosage: 800 MG, EVERY 2 WEEKS
     Route: 040
     Dates: start: 20130211, end: 20130311
  19. 5?FU /00098801/ [Suspect]
     Active Substance: FLUOROURACIL
     Dosage: 3850 MG, EVERY 2 WEEKS
     Route: 041
     Dates: start: 20130325, end: 20130717
  20. PEGYLATED LIPOSOMAL IRINOTECAN [Suspect]
     Active Substance: IRINOTECAN HYDROCHLORIDE
     Dosage: 300 MG, EVERY 2 WEEKS
     Route: 042
     Dates: start: 20130325
  21. FUROSEMID [Concomitant]
     Active Substance: FUROSEMIDE
     Dosage: UNK
  22. PHENPROCOUMON [Concomitant]
     Active Substance: PHENPROCOUMON
     Dosage: 100 MG, UNK
     Route: 048
  23. METOCLOPRAMIDE. [Concomitant]
     Active Substance: METOCLOPRAMIDE
     Dosage: 20 GTT, 3X/DAY
  24. CALCIUM FOLINATE [Suspect]
     Active Substance: LEUCOVORIN CALCIUM
     Dosage: 640 MG, EVERY 2 WEEKS
     Route: 042
     Dates: start: 20130325, end: 20130715
  25. AVASTIN [Suspect]
     Active Substance: BEVACIZUMAB
     Dosage: 475MG, EVERY 2 WEEKS
     Route: 042
     Dates: start: 20130715
  26. 5?FU /00098801/ [Suspect]
     Active Substance: FLUOROURACIL
     Dosage: UNK
     Dates: end: 2013
  27. 5?FU /00098801/ [Suspect]
     Active Substance: FLUOROURACIL
     Dosage: 550 MG, EVERY 2 WEEKS
     Route: 040
     Dates: start: 20131106
  28. PEGYLATED LIPOSOMAL IRINOTECAN [Suspect]
     Active Substance: IRINOTECAN HYDROCHLORIDE
     Indication: COLORECTAL CANCER METASTATIC
     Dosage: 300 MG, EVERY 2 WEEKS
     Route: 042
     Dates: start: 20130211, end: 20130211
  29. METOPROLOL SUCCINATE. [Concomitant]
     Active Substance: METOPROLOL SUCCINATE
     Indication: CARDIAC FAILURE
     Dosage: UNK
  30. NOVAMINSULFON [Concomitant]
     Active Substance: METAMIZOLE
     Indication: PAIN
     Dosage: 1000 MG, DAILY
     Route: 048

REACTIONS (8)
  - Neoplasm progression [Fatal]
  - Pneumonia [Fatal]
  - General physical health deterioration [Fatal]
  - Laboratory test abnormal [Not Recovered/Not Resolved]
  - General physical health deterioration [Recovered/Resolved]
  - Abdominal pain upper [Fatal]
  - Infection [Fatal]
  - Abdominal pain upper [Recovered/Resolved]

NARRATIVE: CASE EVENT DATE: 2013
